FAERS Safety Report 4573875-3 (Version None)
Quarter: 2005Q1

REPORT INFORMATION
  Report Type: 
  Country: None (occurrence: None)
  Receive Date: 20050203
  Receipt Date: 20050124
  Transmission Date: 20050727
  Serious: Yes (Death, Hospitalization)
  Sender: FDA-Public Use
  Company Number: 2005UW00085

PATIENT
  Age: 59 Year
  Sex: Male
  Weight: 71.2147 kg

DRUGS (5)
  1. CRESTOR [Suspect]
     Indication: LIPIDS INCREASED
     Dosage: 10 MG QD PO
     Route: 048
     Dates: start: 20040501, end: 20040622
  2. ACTIVASE [Suspect]
     Dates: start: 20040802, end: 20040802
  3. PAXIL [Concomitant]
  4. LASIX [Concomitant]
  5. NORTRIPTYLINE HCL [Concomitant]

REACTIONS (8)
  - ANOREXIA [None]
  - ATRIAL FIBRILLATION [None]
  - BRAIN STEM HAEMORRHAGE [None]
  - CEREBRAL HAEMORRHAGE [None]
  - CEREBROVASCULAR ACCIDENT [None]
  - HAEMORRHAGIC INFARCTION [None]
  - INSOMNIA [None]
  - RETCHING [None]
